FAERS Safety Report 8322856-2 (Version None)
Quarter: 2012Q2

REPORT INFORMATION
  Report Type: 
  Country: None (occurrence: None)
  Receive Date: 20120430
  Receipt Date: 20120417
  Transmission Date: 20120825
  Serious: Yes (Hospitalization)
  Sender: FDA-Public Use
  Company Number: FR-ROCHE-768660

PATIENT
  Sex: Male
  Weight: 82 kg

DRUGS (20)
  1. BACTRIM [Concomitant]
  2. PREDNISONE TAB [Suspect]
     Route: 048
  3. FLUINDIONE [Suspect]
     Indication: PRODUCT USED FOR UNKNOWN INDICATION
     Route: 065
  4. DITROPAN [Concomitant]
     Route: 048
     Dates: start: 20110320, end: 20110323
  5. MYCOPHENOLATE MOFETIL (CELLCEPT) [Suspect]
     Indication: RENAL TRANSPLANT
     Route: 048
  6. PREDNISONE TAB [Suspect]
     Indication: RENAL TRANSPLANT
     Route: 048
  7. CYCLOSPORINE [Suspect]
     Route: 048
  8. HEPARIN SODIUM [Suspect]
     Indication: PRODUCT USED FOR UNKNOWN INDICATION
     Route: 065
     Dates: start: 20110321, end: 20110326
  9. LASIX [Concomitant]
     Route: 048
  10. NOVORAPID [Concomitant]
     Route: 058
     Dates: start: 20110319, end: 20110322
  11. ACETAMINOPHEN [Concomitant]
     Route: 048
     Dates: start: 20110319, end: 20110323
  12. BENERVA [Concomitant]
     Route: 048
     Dates: start: 20110321, end: 20110323
  13. ACUPAN [Concomitant]
     Dosage: TDD: 3 VIALS.
     Route: 042
     Dates: start: 20110318, end: 20110323
  14. HALDOL [Concomitant]
     Dates: start: 20110321, end: 20110323
  15. CYCLOSPORINE [Suspect]
     Indication: RENAL TRANSPLANT
     Route: 048
  16. CLONAZEPAM [Concomitant]
     Route: 048
  17. NEXIUM [Concomitant]
     Route: 048
  18. BECILAN [Concomitant]
     Route: 048
     Dates: start: 20110321, end: 20110323
  19. MYCOPHENOLATE MOFETIL (CELLCEPT) [Suspect]
     Route: 048
  20. CALCIDIA [Concomitant]

REACTIONS (2)
  - PULMONARY EMBOLISM [None]
  - PERIRENAL HAEMATOMA [None]
